FAERS Safety Report 9378041 (Version 1)
Quarter: 2013Q3

REPORT INFORMATION
  Report Type: Spontaneous
  Country: US (occurrence: US)
  Receive Date: 20130701
  Receipt Date: 20130701
  Transmission Date: 20140515
  Serious: Yes (Hospitalization)
  Sender: FDA-Public Use
  Company Number: US-GLAXOSMITHKLINE-A0837521A

PATIENT
  Age: 71 Year
  Sex: Male

DRUGS (11)
  1. AVANDIA [Suspect]
     Indication: DIABETES MELLITUS
     Route: 048
     Dates: end: 20091015
  2. AVANDARYL [Suspect]
     Route: 048
  3. ASPIRIN [Concomitant]
  4. HUMULIN [Concomitant]
  5. METOPROLOL [Concomitant]
  6. TOPAMAX [Concomitant]
  7. NEXIUM [Concomitant]
  8. NORVASC [Concomitant]
  9. PLAVIX [Concomitant]
  10. NOVOLIN [Concomitant]
  11. ZOCOR [Concomitant]

REACTIONS (2)
  - Myocardial infarction [Unknown]
  - Cardiac failure [Unknown]
